FAERS Safety Report 9998555 (Version 1)
Quarter: 2014Q1

REPORT INFORMATION
  Report Type: Spontaneous
  Country: US (occurrence: US)
  Receive Date: 20140312
  Receipt Date: 20140312
  Transmission Date: 20141002
  Serious: No
  Sender: FDA-Public Use
  Company Number: US-BIOGENIDEC-2014BI018810

PATIENT
  Age: 53 Year
  Sex: Female

DRUGS (21)
  1. TECFIDERA [Suspect]
     Indication: MULTIPLE SCLEROSIS
     Route: 048
     Dates: start: 201305
  2. ZANTAC 75 [Concomitant]
  3. FLAX SEED OIL [Concomitant]
  4. MIRALAX [Concomitant]
  5. XANAX [Concomitant]
  6. EQL CHILDREN^S VITAMIN D G [Concomitant]
  7. BUTALBITAL COMPOUND [Concomitant]
  8. PROVIGIL [Concomitant]
  9. LEVSIN/SL [Concomitant]
  10. BACLOFEN [Concomitant]
  11. SIMVASTATIN [Concomitant]
  12. METANX [Concomitant]
  13. BENAZEPRIL HCL/HYDROCHLOR [Concomitant]
  14. NEXIUM [Concomitant]
  15. CALCIUM 500 [Concomitant]
  16. LYRICA [Concomitant]
  17. COREG CR [Concomitant]
  18. CYMBALTA [Concomitant]
  19. SYNTHROID [Concomitant]
  20. GLUCOPHAGE [Concomitant]
  21. ULTRACET [Concomitant]

REACTIONS (2)
  - Sinusitis [Unknown]
  - Swelling face [Unknown]
